FAERS Safety Report 7776637-9 (Version None)
Quarter: 2011Q3

REPORT INFORMATION
  Report Type: 
  Country: None (occurrence: None)
  Receive Date: 20110926
  Receipt Date: 20110921
  Transmission Date: 20111222
  Serious: Yes (Hospitalization)
  Sender: FDA-Public Use
  Company Number: US-B.I. PHARMACEUTICALS,INC./RIDGEFIELD-2011-BP-22566BP

PATIENT
  Sex: Female

DRUGS (11)
  1. PRADAXA [Suspect]
     Indication: ATRIAL FIBRILLATION
     Dosage: 300 MG
     Route: 048
     Dates: start: 20110101, end: 20110624
  2. LISINOPRIL [Concomitant]
     Indication: HYPERTENSION
  3. ADVAIR DISKUS 100/50 [Concomitant]
     Indication: CHRONIC OBSTRUCTIVE PULMONARY DISEASE
  4. ASPIRIN [Concomitant]
     Indication: CARDIAC DISORDER
  5. METFORMIN HCL [Concomitant]
     Indication: TYPE 2 DIABETES MELLITUS
  6. PROBIOTIC [Concomitant]
     Indication: CLOSTRIDIAL INFECTION
     Dates: start: 20101201
  7. PRADAXA [Suspect]
     Dosage: 300 MG
     Route: 048
     Dates: start: 20110701
  8. DILTIAZEM [Concomitant]
     Indication: HYPERTENSION
  9. OXYGEN [Concomitant]
     Indication: CHRONIC OBSTRUCTIVE PULMONARY DISEASE
  10. GLIMEPIRIDE [Concomitant]
     Indication: TYPE 2 DIABETES MELLITUS
  11. SPIRIVA [Concomitant]
     Indication: CHRONIC OBSTRUCTIVE PULMONARY DISEASE

REACTIONS (4)
  - ELECTROCARDIOGRAM ABNORMAL [None]
  - RENAL STONE REMOVAL [None]
  - KIDNEY INFECTION [None]
  - TRANSIENT ISCHAEMIC ATTACK [None]
